FAERS Safety Report 16007310 (Version 1)
Quarter: 2019Q1

REPORT INFORMATION
  Report Type: Spontaneous
  Country: ES (occurrence: ES)
  Receive Date: 20190226
  Receipt Date: 20190226
  Transmission Date: 20190418
  Serious: Yes (Other)
  Sender: FDA-Public Use
  Company Number: ES-MYLANLABS-2019M1016121

PATIENT
  Age: 65 Year
  Sex: Male

DRUGS (5)
  1. ENALAPRIL MALEATO [Concomitant]
     Active Substance: ENALAPRIL MALEATE
     Dosage: 5 MILLIGRAM, QD
     Route: 048
     Dates: start: 20180703, end: 20180704
  2. LACOSAMIDA [Concomitant]
     Active Substance: LACOSAMIDE
     Dosage: 200 MILLIGRAM, QD
     Route: 042
     Dates: start: 20180629, end: 20180706
  3. CEFOTAXIMA                         /00497601/ [Concomitant]
     Dosage: 2 GRAM, Q8H
     Route: 042
     Dates: start: 20180702, end: 20180709
  4. CAPTOPRIL. [Suspect]
     Active Substance: CAPTOPRIL
     Indication: PRODUCT USED FOR UNKNOWN INDICATION
     Dosage: 12.5 MILLIGRAM, QD
     Route: 048
     Dates: start: 20180705
  5. METILPREDNISOLONA                  /00049601/ [Concomitant]
     Active Substance: METHYLPREDNISOLONE
     Indication: POSTERIOR REVERSIBLE ENCEPHALOPATHY SYNDROME
     Dosage: 40 MILLIGRAM, QD
     Route: 048
     Dates: start: 20180627

REACTIONS (1)
  - Laryngeal oedema [Recovered/Resolved]

NARRATIVE: CASE EVENT DATE: 20180706
